FAERS Safety Report 9054977 (Version 1)
Quarter: 2013Q1

REPORT INFORMATION
  Report Type: Report from Study
  Country: FR (occurrence: FR)
  Receive Date: 20130208
  Receipt Date: 20130208
  Transmission Date: 20140127
  Serious: Yes (Death, Other)
  Sender: FDA-Public Use
  Company Number: FR-ROCHE-631615

PATIENT
  Sex: 0

DRUGS (9)
  1. RITUXIMAB [Suspect]
     Indication: MANTLE CELL LYMPHOMA
     Route: 065
  2. CYCLOPHOSPHAMIDE [Suspect]
     Indication: MANTLE CELL LYMPHOMA
     Route: 065
  3. VINCRISTINE [Suspect]
     Indication: MANTLE CELL LYMPHOMA
     Route: 065
  4. DOXORUBICIN [Suspect]
     Indication: MANTLE CELL LYMPHOMA
     Route: 065
  5. PREDNISONE [Suspect]
     Indication: MANTLE CELL LYMPHOMA
     Route: 065
  6. DEXAMETHASONE [Suspect]
     Indication: MANTLE CELL LYMPHOMA
     Route: 064
  7. CYTARABINE [Suspect]
     Indication: MANTLE CELL LYMPHOMA
     Route: 065
  8. OXALIPLATIN [Suspect]
     Indication: MANTLE CELL LYMPHOMA
     Route: 065
  9. CISPLATIN [Suspect]
     Indication: MANTLE CELL LYMPHOMA
     Route: 065

REACTIONS (8)
  - Death [Fatal]
  - Renal failure [Unknown]
  - Neurotoxicity [Unknown]
  - Paraplegia [Unknown]
  - Pneumocystis jirovecii infection [Recovered/Resolved]
  - Nephropathy toxic [Unknown]
  - Urinary tract disorder [Unknown]
  - Ill-defined disorder [Recovered/Resolved]
